FAERS Safety Report 24607837 (Version 2)
Quarter: 2024Q4

REPORT INFORMATION
  Report Type: Other
  Country: US (occurrence: US)
  Receive Date: 20241112
  Receipt Date: 20241211
  Transmission Date: 20250115
  Serious: No
  Sender: SLATE RUN
  Company Number: US-SLATERUN-2024SRREG00153

PATIENT
  Age: 81 Year
  Sex: Female

DRUGS (2)
  1. DESVENLAFAXINE SUCCINATE [Suspect]
     Active Substance: DESVENLAFAXINE SUCCINATE
     Indication: Depression
     Route: 065
  2. PRISTIQ EXTENDED-RELEASE [Concomitant]
     Active Substance: DESVENLAFAXINE SUCCINATE
     Indication: Depression
     Dosage: EXTENDED-RELEASE
     Route: 065

REACTIONS (5)
  - Pruritus [Recovered/Resolved]
  - Skin lesion [Recovered/Resolved]
  - Genital lesion [Recovered/Resolved]
  - Rash papular [Recovered/Resolved]
  - Product substitution issue [Unknown]
